FAERS Safety Report 16752333 (Version 1)
Quarter: 2019Q3

REPORT INFORMATION
  Report Type: Report from Study
  Country: CA (occurrence: CA)
  Receive Date: 20190828
  Receipt Date: 20190828
  Transmission Date: 20191005
  Serious: Yes (Other)
  Sender: FDA-Public Use
  Company Number: CA-PFIZER INC-2019360868

PATIENT
  Age: 58 Year
  Sex: Male

DRUGS (38)
  1. NAPROXEN. [Concomitant]
     Active Substance: NAPROXEN
     Dosage: UNK
     Route: 065
  2. STELARA [Concomitant]
     Active Substance: USTEKINUMAB
     Dosage: UNK
     Route: 065
  3. CALCIPOTRIENE AND BETAMETHASONE DIPROPIONATE [Concomitant]
     Active Substance: BETAMETHASONE DIPROPIONATE\CALCIPOTRIENE
     Dosage: UNK
     Route: 065
  4. ENBREL [Concomitant]
     Active Substance: ETANERCEPT
     Dosage: UNK
     Route: 065
  5. COSENTYX [Suspect]
     Active Substance: SECUKINUMAB
     Dosage: 300 MG, MONTHLY
     Route: 058
  6. COSENTYX [Suspect]
     Active Substance: SECUKINUMAB
     Dosage: 300 MG, WEEKLY
     Route: 058
  7. COSENTYX [Suspect]
     Active Substance: SECUKINUMAB
     Dosage: 300 MG, UNK
     Route: 058
  8. CELEBREX [Concomitant]
     Active Substance: CELECOXIB
     Dosage: UNK
     Route: 065
  9. CELEBREX [Concomitant]
     Active Substance: CELECOXIB
     Dosage: UNK
     Route: 065
  10. STATEX [MORPHINE SULFATE] [Concomitant]
     Active Substance: MORPHINE SULFATE
     Dosage: 30 MG, 2X/DAY
     Route: 065
  11. METHOTREXATE SODIUM. [Suspect]
     Active Substance: METHOTREXATE SODIUM
     Dosage: UNK
     Route: 065
  12. COSENTYX [Suspect]
     Active Substance: SECUKINUMAB
     Dosage: UNK
     Route: 065
  13. COSENTYX [Suspect]
     Active Substance: SECUKINUMAB
     Dosage: 300 MG, UNK
     Route: 058
  14. COSENTYX [Suspect]
     Active Substance: SECUKINUMAB
     Dosage: 300 MG, UNK
     Route: 058
  15. IBUPROFEN. [Concomitant]
     Active Substance: IBUPROFEN
     Dosage: UNK
     Route: 065
  16. VITAMIN C [Concomitant]
     Active Substance: ASCORBIC ACID
     Dosage: UNK
     Route: 065
  17. COSENTYX [Suspect]
     Active Substance: SECUKINUMAB
     Dosage: 300 MG, MONTHLY
     Route: 058
  18. DICLOFENAC SODIUM. [Suspect]
     Active Substance: DICLOFENAC SODIUM
     Dosage: UNK
     Route: 065
  19. STATEX [MORPHINE SULFATE] [Concomitant]
     Active Substance: MORPHINE SULFATE
     Indication: ARTHRALGIA
     Dosage: 60 MG, UNK
     Route: 065
  20. STATEX [MORPHINE SULFATE] [Concomitant]
     Active Substance: MORPHINE SULFATE
     Dosage: UNK
     Route: 065
  21. METHOTREXATE SODIUM. [Suspect]
     Active Substance: METHOTREXATE SODIUM
     Dosage: UNK
     Route: 065
  22. NAPROXEN. [Concomitant]
     Active Substance: NAPROXEN
     Dosage: UNK
     Route: 065
  23. OTEZLA [Concomitant]
     Active Substance: APREMILAST
     Dosage: UNK
     Route: 065
  24. PREDNISONE. [Concomitant]
     Active Substance: PREDNISONE
     Dosage: UNK
     Route: 065
  25. VITAMIN C [Concomitant]
     Active Substance: ASCORBIC ACID
     Dosage: UNK
     Route: 065
  26. CALCIUM CARBONATE. [Suspect]
     Active Substance: CALCIUM CARBONATE
     Dosage: UNK
     Route: 065
  27. COSENTYX [Suspect]
     Active Substance: SECUKINUMAB
     Indication: PSORIATIC ARTHROPATHY
     Dosage: 300 MG, UNK
     Route: 058
  28. COSENTYX [Suspect]
     Active Substance: SECUKINUMAB
     Dosage: 300 MG, MONTHLY
     Route: 058
  29. COSENTYX [Suspect]
     Active Substance: SECUKINUMAB
     Dosage: 300 MG, UNK
     Route: 058
  30. IBUPROFEN. [Concomitant]
     Active Substance: IBUPROFEN
     Dosage: UNK
     Route: 065
  31. PREDNISONE. [Concomitant]
     Active Substance: PREDNISONE
     Dosage: UNK
     Route: 065
  32. COSENTYX [Suspect]
     Active Substance: SECUKINUMAB
     Dosage: 300 MG, UNK
     Route: 058
  33. COSENTYX [Suspect]
     Active Substance: SECUKINUMAB
     Dosage: 300 MG, MONTHLY
     Route: 058
  34. COSENTYX [Suspect]
     Active Substance: SECUKINUMAB
     Dosage: 300 MG, UNK
     Route: 058
  35. VOLTAREN [DICLOFENAC] [Suspect]
     Active Substance: DICLOFENAC SODIUM
     Dosage: UNK
     Route: 065
  36. BETAMETHASONE DIPROPIONATE/CALCIPOTRIOL [Concomitant]
     Dosage: UNK
     Route: 065
  37. OTEZLA [Concomitant]
     Active Substance: APREMILAST
     Dosage: UNK
     Route: 065
  38. STATEX [MORPHINE SULFATE] [Concomitant]
     Active Substance: MORPHINE SULFATE
     Dosage: 30 MG, UNK
     Route: 065

REACTIONS (37)
  - Dehydration [Recovering/Resolving]
  - Headache [Recovering/Resolving]
  - Joint swelling [Recovering/Resolving]
  - Lethargy [Recovering/Resolving]
  - Localised infection [Recovering/Resolving]
  - Lung infection [Recovering/Resolving]
  - Nasal congestion [Recovering/Resolving]
  - Hyperhidrosis [Recovering/Resolving]
  - Influenza [Recovering/Resolving]
  - Skin lesion [Recovering/Resolving]
  - Pruritus [Recovering/Resolving]
  - Rash erythematous [Recovering/Resolving]
  - Blood pressure decreased [Recovering/Resolving]
  - Inflammation [Recovering/Resolving]
  - Rash [Recovering/Resolving]
  - Skin irritation [Recovering/Resolving]
  - Inappropriate schedule of product administration [Recovering/Resolving]
  - Arthralgia [Recovering/Resolving]
  - Nasopharyngitis [Recovering/Resolving]
  - Pain [Recovering/Resolving]
  - Muscle swelling [Recovering/Resolving]
  - Musculoskeletal stiffness [Recovering/Resolving]
  - Psoriasis [Recovering/Resolving]
  - Energy increased [Recovering/Resolving]
  - Gait disturbance [Recovering/Resolving]
  - Therapeutic product effect incomplete [Recovering/Resolving]
  - Dermatitis [Recovering/Resolving]
  - Anxiety [Recovering/Resolving]
  - Fatigue [Recovering/Resolving]
  - Mass [Recovering/Resolving]
  - Psoriatic arthropathy [Recovering/Resolving]
  - Withdrawal syndrome [Recovering/Resolving]
  - Arthritis [Recovering/Resolving]
  - Feeling abnormal [Recovering/Resolving]
  - Grip strength decreased [Recovering/Resolving]
  - Mobility decreased [Recovering/Resolving]
  - Pain in extremity [Recovering/Resolving]
